FAERS Safety Report 6393553-8 (Version None)
Quarter: 2009Q4

REPORT INFORMATION
  Report Type: 
  Country: None (occurrence: None)
  Receive Date: 20091008
  Receipt Date: 20091002
  Transmission Date: 20100525
  Serious: Yes (Life-Threatening, Disabling)
  Sender: FDA-Public Use
  Company Number: B0596688A

PATIENT
  Sex: Male

DRUGS (6)
  1. EPZICOM [Suspect]
     Indication: HIV INFECTION
     Dosage: 1TAB PER DAY
     Route: 048
     Dates: start: 20070413
  2. REYATAZ [Suspect]
     Indication: HIV INFECTION
     Dosage: 400MG PER DAY
     Route: 048
     Dates: start: 20040311
  3. LOPEMIN [Concomitant]
     Dosage: 1MG THREE TIMES PER DAY
     Route: 048
  4. UNKNOWN DRUG [Concomitant]
     Dosage: 1U THREE TIMES PER DAY
     Route: 048
  5. URSO 250 [Concomitant]
     Indication: HEPATIC FUNCTION ABNORMAL
     Dosage: 100MG THREE TIMES PER DAY
     Route: 048
     Dates: end: 20080409
  6. BEZATOL SR [Concomitant]
     Dosage: 100MG PER DAY
     Route: 048

REACTIONS (6)
  - BACK PAIN [None]
  - GROIN PAIN [None]
  - METASTASES TO BONE [None]
  - METASTATIC GASTRIC CANCER [None]
  - OSTEOPOROSIS [None]
  - SPINAL COMPRESSION FRACTURE [None]
